FAERS Safety Report 9239274 (Version 1)
Quarter: 2013Q2

REPORT INFORMATION
  Report Type: Spontaneous
  Country: DE (occurrence: DE)
  Receive Date: 20130418
  Receipt Date: 20130418
  Transmission Date: 20140414
  Serious: Yes (Other)
  Sender: FDA-Public Use
  Company Number: PHHY2013DE005579

PATIENT
  Sex: 0

DRUGS (6)
  1. AFINITOR [Suspect]
     Indication: PANCREATIC NEUROENDOCRINE TUMOUR
     Dosage: 10 MG, DAILY
     Route: 048
     Dates: start: 20121220, end: 20130117
  2. NOVAMINSULFON [Concomitant]
     Indication: PAIN
     Dosage: 2000 MG, DAILY
     Route: 048
  3. SPIRIVA [Concomitant]
     Indication: CHRONIC OBSTRUCTIVE PULMONARY DISEASE
     Dosage: 12 UG, DAILY
  4. FORMOLICH [Concomitant]
     Indication: CHRONIC OBSTRUCTIVE PULMONARY DISEASE
     Dosage: 12 UG, DAILY
     Route: 048
  5. PANTOPRAZOLE [Concomitant]
  6. CARBIMAZOLE [Concomitant]

REACTIONS (4)
  - Parosmia [Recovered/Resolved]
  - Dysgeusia [Recovered/Resolved]
  - Decreased appetite [Unknown]
  - Weight decreased [Unknown]
